FAERS Safety Report 9270773 (Version 1)
Quarter: 2013Q2

REPORT INFORMATION
  Report Type: Spontaneous
  Country: CN (occurrence: CN)
  Receive Date: 20130503
  Receipt Date: 20130503
  Transmission Date: 20140414
  Serious: Yes (Death)
  Sender: FDA-Public Use
  Company Number: CN-BAXTER-2013BAX016585

PATIENT
  Age: 48 Year
  Sex: Male

DRUGS (4)
  1. ENDOXAN [Suspect]
     Indication: LYMPHOMA
     Route: 065
  2. ADRIAMYCIN [Suspect]
     Indication: LYMPHOMA
     Route: 065
  3. VINCRISTINE [Suspect]
     Indication: LYMPHOMA
     Route: 065
  4. PREDNISONE [Suspect]
     Indication: LYMPHOMA
     Route: 065

REACTIONS (1)
  - Toxic shock syndrome [Fatal]
